FAERS Safety Report 18214459 (Version 1)
Quarter: 2020Q3

REPORT INFORMATION
  Report Type: Spontaneous
  Country: CH (occurrence: CH)
  Receive Date: 20200831
  Receipt Date: 20200831
  Transmission Date: 20201103
  Serious: Yes (Life-Threatening, Hospitalization, Other)
  Sender: FDA-Public Use
  Company Number: CH-ASTRAZENECA-2020SF08839

PATIENT
  Age: 21 Year
  Sex: Male

DRUGS (8)
  1. SEQUASE [Concomitant]
     Active Substance: QUETIAPINE FUMARATE
     Dosage: AS NECESSARY, 25 MG IN RESERVE TO MAX 4 PCS DAILY
     Route: 048
  2. NOVALGIN (METAMIZOLE SODIUM) [Suspect]
     Active Substance: METAMIZOLE SODIUM
     Dosage: UNKNOWN QUANTITY ON 07.08.2017 APPROX. 16.00 H IN SUICIDAL INTENT
     Route: 048
     Dates: start: 20170807, end: 20170807
  3. DAFALGAN [Concomitant]
     Active Substance: ACETAMINOPHEN
     Dosage: 1G 1?1?1?1
     Route: 048
  4. SEROQUEL [Suspect]
     Active Substance: QUETIAPINE FUMARATE
     Dosage: UNCLEAR AMOUNT BETWEEN 25 AND 250 MG ON 07.08.2017 APPROX. 16.00 H IN SUICIDAL INTENT
     Route: 048
     Dates: start: 20170807, end: 20170807
  5. DAFALGAN [Suspect]
     Active Substance: ACETAMINOPHEN
     Dosage: 12 G ON 07.08.2017 APPROX. 16.00 H IN SUICIDAL INTENT
     Route: 048
     Dates: start: 20170807, end: 20170807
  6. PANTOZOL [Concomitant]
     Active Substance: PANTOPRAZOLE SODIUM
     Dosage: 20 MG 1?0?0
     Route: 048
  7. NOVALGIN [Concomitant]
     Dosage: 500 MG 2?2?2?2
     Route: 048
  8. SEROQUEL XR [Concomitant]
     Active Substance: QUETIAPINE FUMARATE
     Dosage: 50 MG 2?0?2
     Route: 048

REACTIONS (2)
  - Poisoning [Recovered/Resolved]
  - Vomiting [Recovered/Resolved]

NARRATIVE: CASE EVENT DATE: 20170807
